FAERS Safety Report 6246447-2 (Version None)
Quarter: 2009Q2

REPORT INFORMATION
  Report Type: 
  Country: None (occurrence: None)
  Receive Date: 20090626
  Receipt Date: 20090618
  Transmission Date: 20091009
  Serious: Yes (Hospitalization, Other)
  Sender: FDA-Public Use
  Company Number: PT-ROCHE-639710

PATIENT
  Sex: Male
  Weight: 81 kg

DRUGS (2)
  1. VALIUM [Suspect]
     Indication: ANXIETY
     Route: 048
     Dates: start: 20090326
  2. VALIUM [Suspect]
     Route: 048
     Dates: end: 20090423

REACTIONS (4)
  - FATIGUE [None]
  - HYPOAESTHESIA [None]
  - PAIN [None]
  - SLEEP DISORDER [None]
